FAERS Safety Report 16404379 (Version 1)
Quarter: 2019Q2

REPORT INFORMATION
  Report Type: Spontaneous
  Country: US (occurrence: US)
  Receive Date: 20190501
  Receipt Date: 20190501
  Transmission Date: 20190711
  Serious: Yes (Hospitalization)
  Sender: FDA-Public Use
  Company Number: None

PATIENT
  Age: 74 Year
  Sex: Male
  Weight: 91.63 kg

DRUGS (1)
  1. CYANOCOBALAMIN. [Suspect]
     Active Substance: CYANOCOBALAMIN
     Route: 030
     Dates: start: 20181218, end: 20181218

REACTIONS (5)
  - Flushing [None]
  - Loss of consciousness [None]
  - Syncope [None]
  - Pulse absent [None]
  - Dizziness [None]

NARRATIVE: CASE EVENT DATE: 20181218
